FAERS Safety Report 8508431-5 (Version None)
Quarter: 2012Q3

REPORT INFORMATION
  Report Type: 
  Country: None (occurrence: None)
  Receive Date: 20120713
  Receipt Date: 20120704
  Transmission Date: 20120928
  Serious: Yes (Death, Other)
  Sender: FDA-Public Use
  Company Number: FR-009507513-2012SP036114

PATIENT

DRUGS (12)
  1. VICTRELIS [Suspect]
     Indication: HEPATITIS C
     Dosage: 800 MG, TID
     Dates: start: 20110517, end: 20110616
  2. NEUPOGEN [Concomitant]
     Indication: NEUTROPENIA
     Dosage: 30000 / 15 DAYS
     Dates: start: 20110719, end: 20111213
  3. REBETOL [Suspect]
     Dosage: 400 MG, BID
     Dates: start: 20110425, end: 20120103
  4. ESCITALOPRAM [Concomitant]
     Indication: PRODUCT USED FOR UNKNOWN INDICATION
     Dosage: 20 MG, QD
  5. OMEPRAZOLE [Concomitant]
     Indication: ABDOMINAL PAIN UPPER
     Dosage: 20 MG, QD
  6. NEORECORMON [Concomitant]
     Indication: ANAEMIA
     Dosage: 60000
     Dates: start: 20111011, end: 20120113
  7. VIRAFERONPEG [Suspect]
     Indication: HEPATITIS C
     Dosage: 0.45 ML, QW
     Dates: start: 20110425, end: 20111213
  8. XANAX [Concomitant]
     Indication: PRODUCT USED FOR UNKNOWN INDICATION
     Dosage: 0.25 MG, QD
  9. FUROSEMIDE [Concomitant]
     Indication: OEDEMA PERIPHERAL
     Dosage: 20 MG, QD
  10. DIGOXIN [Concomitant]
     Indication: CARDIAC FAILURE
     Dosage: 0.125
  11. REBETOL [Suspect]
     Indication: OEDEMA PERIPHERAL
     Dosage: 1 DF, QD
  12. VITAMIN E [Concomitant]
     Indication: VITAMIN SUPPLEMENTATION
     Dosage: 500 MG, QD

REACTIONS (1)
  - ASCITES [None]
